FAERS Safety Report 9803791 (Version 1)
Quarter: 2014Q1

REPORT INFORMATION
  Report Type: Spontaneous
  Country: TN (occurrence: None)
  Receive Date: 20140103
  Receipt Date: 20140103
  Transmission Date: 20141002
  Serious: Yes (Hospitalization)
  Sender: FDA-Public Use
  Company Number: 2013P1022292

PATIENT
  Age: 59 Year
  Sex: Female

DRUGS (3)
  1. CAPTOPRIL [Suspect]
     Indication: HYPERTENSION
     Dosage: 1 PCT; X1; TDER; 3 WEEKS
     Route: 062
  2. ACEBUTOLOL [Concomitant]
  3. FUROSIMIDE [Concomitant]

REACTIONS (4)
  - Alanine aminotransferase increased [None]
  - Aspartate aminotransferase increased [None]
  - Skin test positive [None]
  - Drug reaction with eosinophilia and systemic symptoms [None]
